FAERS Safety Report 4319112-6 (Version None)
Quarter: 2004Q1

REPORT INFORMATION
  Report Type: 
  Country: None (occurrence: None)
  Receive Date: 20040318
  Receipt Date: 20040318
  Transmission Date: 20041129
  Serious: No
  Sender: FDA-Public Use
  Company Number: None

PATIENT
  Age: 14 Year
  Sex: Female
  Weight: 37.6486 kg

DRUGS (2)
  1. REMERON SOLTAB [Suspect]
     Indication: GENERALISED ANXIETY DISORDER
     Dosage: 1 TAB EVENING ORAL
     Route: 048
     Dates: start: 20031001, end: 20031101
  2. REMERON SOLTAB [Suspect]
     Indication: GENERALISED ANXIETY DISORDER
     Dosage: 1/2 TAB EVENING ORAL
     Route: 048
     Dates: start: 20031114, end: 20031201

REACTIONS (3)
  - DEPRESSION [None]
  - HOSTILITY [None]
  - SUICIDAL IDEATION [None]
